FAERS Safety Report 8334996-2 (Version None)
Quarter: 2012Q2

REPORT INFORMATION
  Report Type: 
  Country: None (occurrence: None)
  Receive Date: 20120503
  Receipt Date: 20100319
  Transmission Date: 20120825
  Serious: No
  Sender: FDA-Public Use
  Company Number: US-TEVA-2010001597

PATIENT
  Sex: Female

DRUGS (6)
  1. VITAMIN D [Concomitant]
     Indication: VITAMIN D DEFICIENCY
  2. METFORMIN HCL [Concomitant]
     Indication: POLYCYSTIC OVARIES
     Dosage: 1500 MILLIGRAM;
     Dates: start: 20060101
  3. ANTARA (MICRONIZED) [Concomitant]
     Indication: BLOOD TRIGLYCERIDES INCREASED
     Dates: start: 20050101
  4. SYNTHROID [Concomitant]
     Indication: HYPOTHYROIDISM
     Dates: start: 20050101
  5. NUVIGIL [Suspect]
     Indication: NARCOLEPSY
     Dosage: 150 MILLIGRAM;
     Route: 048
     Dates: start: 20100201, end: 20100305
  6. TOPROL-XL [Concomitant]
     Indication: SUPRAVENTRICULAR TACHYCARDIA
     Dosage: 200 MILLIGRAM;
     Dates: start: 19960101

REACTIONS (3)
  - PALPITATIONS [None]
  - SOMNOLENCE [None]
  - DRUG INEFFECTIVE [None]
